FAERS Safety Report 14541672 (Version 1)
Quarter: 2018Q1

REPORT INFORMATION
  Report Type: Spontaneous
  Country: CN (occurrence: CN)
  Receive Date: 20180216
  Receipt Date: 20180216
  Transmission Date: 20180509
  Serious: Yes (Other)
  Sender: FDA-Public Use
  Company Number: CN-IMPAX LABORATORIES, INC-2018-IPXL-00463

PATIENT
  Age: 52 Year
  Sex: Female

DRUGS (3)
  1. METARAMINOL [Suspect]
     Active Substance: METARAMINOL
     Indication: BLOOD PRESSURE ABNORMAL
     Dosage: 10 ?G/KG/MIN, UNK
     Route: 065
  2. ADRENACLICK [Suspect]
     Active Substance: EPINEPHRINE
     Indication: CARDIAC ARREST
     Dosage: UNK
     Route: 065
  3. DOPAMINE [Suspect]
     Active Substance: DOPAMINE\DOPAMINE HYDROCHLORIDE
     Indication: BLOOD PRESSURE ABNORMAL
     Dosage: 30 ?G/KG/MIN, UNK
     Route: 065

REACTIONS (6)
  - Drug ineffective [Unknown]
  - Acute kidney injury [Recovered/Resolved]
  - Pancreatitis acute [Unknown]
  - Gastrointestinal disorder [Unknown]
  - Upper gastrointestinal haemorrhage [Unknown]
  - Intra-abdominal haemorrhage [Unknown]
